FAERS Safety Report 16905047 (Version 2)
Quarter: 2019Q4

REPORT INFORMATION
  Report Type: Spontaneous
  Country: US (occurrence: US)
  Receive Date: 20191010
  Receipt Date: 20191111
  Transmission Date: 20200122
  Serious: No
  Sender: FDA-Public Use
  Company Number: US-JNJFOC-20191012311

PATIENT
  Sex: Female

DRUGS (1)
  1. IMBRUVICA [Suspect]
     Active Substance: IBRUTINIB
     Indication: PRODUCT USED FOR UNKNOWN INDICATION
     Dosage: 420 MG, QD (THREE 140 MG CAPSULES ONCE DAILY)
     Route: 048
     Dates: end: 20191025

REACTIONS (5)
  - Atypical pneumonia [Unknown]
  - Decreased appetite [Unknown]
  - Urinary tract infection [Unknown]
  - Vomiting [Unknown]
  - Rash [Unknown]
